FAERS Safety Report 9161332 (Version 2)
Quarter: 2013Q2

REPORT INFORMATION
  Report Type: Spontaneous
  Country: FR (occurrence: FR)
  Receive Date: 20130313
  Receipt Date: 20130620
  Transmission Date: 20140414
  Serious: Yes (Hospitalization, Other)
  Sender: FDA-Public Use
  Company Number: FR-PFIZER INC-2013081299

PATIENT
  Age: 79 Year
  Sex: Female

DRUGS (12)
  1. LYRICA [Suspect]
     Dosage: 100 MG, 2X/DAY
     Route: 048
  2. EBIXA [Suspect]
     Dosage: 20 MG, 1X/DAY
     Route: 048
     Dates: end: 20120525
  3. CYMBALTA [Suspect]
     Dosage: 30 MG, 1X/DAY
     Route: 048
     Dates: end: 20120525
  4. CERIS [Suspect]
     Dosage: 20 MG, 1X/DAY
     Route: 048
     Dates: end: 20120525
  5. IMOVANE [Suspect]
     Dosage: 7.5 MG, 1X/DAY
     Route: 048
     Dates: end: 20120525
  6. SKENAN [Suspect]
     Dosage: 20 MG, 1X/DAY
     Route: 048
  7. NOOTROPYL [Suspect]
     Dosage: 2 DF, 1X/DAY
     Route: 048
     Dates: end: 20120525
  8. SPECIAFOLDINE [Concomitant]
     Dosage: 1 DF, 2X/DAY
     Route: 048
     Dates: end: 20120525
  9. LEVOTHYROX [Concomitant]
     Dosage: 100 UG, 1X/DAY
     Route: 048
  10. FUROSEMIDE [Concomitant]
     Dosage: 20 MG, 1X/DAY
     Route: 048
  11. SPIRIVA [Concomitant]
     Dosage: 18 UG, 1X/DAY
     Route: 055
     Dates: end: 20120525
  12. BECLOSPIN [Concomitant]
     Dosage: UNK
     Route: 055
     Dates: end: 20120525

REACTIONS (3)
  - Disturbance in attention [Recovered/Resolved]
  - Respiratory distress [Recovered/Resolved]
  - Pyrexia [Recovered/Resolved]
